FAERS Safety Report 5958201-7 (Version None)
Quarter: 2008Q4

REPORT INFORMATION
  Report Type: 
  Country: None (occurrence: None)
  Receive Date: 20081117
  Receipt Date: 20081103
  Transmission Date: 20090506
  Serious: Yes (Other)
  Sender: FDA-Public Use
  Company Number: DSU-2008-01892

PATIENT
  Sex: Male

DRUGS (2)
  1. OLMESARTAN MEDOXOMIL AND HYDROCHLOROTHIZIDE [Suspect]
     Indication: HYPERTENSION
  2. VERAPAMIL [Concomitant]

REACTIONS (3)
  - ARRHYTHMIA [None]
  - BLOOD PRESSURE INCREASED [None]
  - DRUG INEFFECTIVE [None]
